FAERS Safety Report 24256718 (Version 1)
Quarter: 2024Q3

REPORT INFORMATION
  Report Type: Spontaneous
  Country: US (occurrence: None)
  Receive Date: 20240828
  Receipt Date: 20240828
  Transmission Date: 20241016
  Serious: No
  Sender: ASTRAZENECA
  Company Number: 2024A190934

PATIENT
  Sex: Female

DRUGS (1)
  1. FASENRA [Suspect]
     Active Substance: BENRALIZUMAB
     Indication: Asthma
     Route: 058
     Dates: start: 20240816

REACTIONS (4)
  - Throat irritation [Unknown]
  - Chest pain [Unknown]
  - Flushing [Unknown]
  - Gastrooesophageal reflux disease [Unknown]
